FAERS Safety Report 8176300-9 (Version None)
Quarter: 2012Q1

REPORT INFORMATION
  Report Type: 
  Country: None (occurrence: None)
  Receive Date: 20120301
  Receipt Date: 20120222
  Transmission Date: 20120608
  Serious: Yes (Other)
  Sender: FDA-Public Use
  Company Number: US-COVIDIEN/TYCO HEALTHCARE/MALLINCKRODT-T201200686

PATIENT
  Age: 7 Month
  Sex: Male

DRUGS (7)
  1. MORPHINE [Suspect]
     Indication: SEDATION
     Dosage: UNK
  2. LORAZEPAM [Suspect]
     Indication: SEDATION
  3. FENTANYL CITRATE [Suspect]
     Indication: SEDATION
  4. LORAZEPAM [Suspect]
     Indication: AGITATION
  5. ACETAMINOPHEN AND CODEINE PHOSPHATE [Suspect]
     Indication: AGITATION
     Dosage: UNK
  6. MORPHINE [Suspect]
     Indication: AGITATION
  7. IBUPROFEN [Concomitant]
     Indication: AGITATION

REACTIONS (3)
  - DELIRIUM [None]
  - PSYCHOMOTOR HYPERACTIVITY [None]
  - INSOMNIA [None]
